FAERS Safety Report 8192178-1 (Version None)
Quarter: 2012Q1

REPORT INFORMATION
  Report Type: 
  Country: None (occurrence: None)
  Receive Date: 20120307
  Receipt Date: 20120302
  Transmission Date: 20120608
  Serious: Yes (Other)
  Sender: FDA-Public Use
  Company Number: DE-PFIZER INC-2012049759

PATIENT
  Age: 58 Year
  Sex: Female

DRUGS (8)
  1. RAMIPRIL [Suspect]
  2. QUETIAPINE FUMARATE [Suspect]
     Indication: SUICIDE ATTEMPT
     Dosage: ONCE
  3. CLONIDINE [Suspect]
     Indication: SUICIDE ATTEMPT
     Dosage: ONCE
  4. OXAZEPAM [Suspect]
     Indication: SUICIDE ATTEMPT
     Dosage: ONCE
  5. METOPROLOL SUCCINATE [Suspect]
  6. PANTOPRAZOLE [Suspect]
     Indication: SUICIDE ATTEMPT
     Dosage: 40 MG, (ONCE)
  7. SERTRALINE HYDROCHLORIDE [Suspect]
     Indication: SUICIDE ATTEMPT
     Dosage: ONCE
  8. ALCOHOL [Suspect]
     Indication: SUICIDE ATTEMPT
     Dosage: ONCE

REACTIONS (3)
  - INTENTIONAL OVERDOSE [None]
  - DYSPNOEA [None]
  - SUICIDE ATTEMPT [None]
